FAERS Safety Report 19172986 (Version 1)
Quarter: 2021Q2

REPORT INFORMATION
  Report Type: Spontaneous
  Country: GB (occurrence: GB)
  Receive Date: 20210423
  Receipt Date: 20210423
  Transmission Date: 20210717
  Serious: Yes (Hospitalization)
  Sender: FDA-Public Use
  Company Number: GB-TEVA-2021-GB-1902128

PATIENT
  Sex: Female

DRUGS (5)
  1. GABAPENTIN. [Suspect]
     Active Substance: GABAPENTIN
     Dosage: 600MG MORNING, 600MG LUNCHTIME AND 900MG AT NIGHT
  2. CHONDROITIN [Concomitant]
     Active Substance: CHONDROITIN
     Dosage: 1 DOSAGE FORMS DAILY; GLUCOSAMINE AND CHONDROITIN
  3. COLECALCIFEROL [Concomitant]
     Active Substance: CHOLECALCIFEROL
     Dosage: 3000 IU (INTERNATIONAL UNIT) DAILY;
     Dates: end: 20210412
  4. E45 CREAM [Concomitant]
     Active Substance: LANOLIN\LIGHT MINERAL OIL\PARAFFIN
     Dosage: BD
  5. FOLIC ACID. [Concomitant]
     Active Substance: FOLIC ACID
     Dosage: 5 MILLIGRAM DAILY;

REACTIONS (1)
  - Hallucination [Unknown]
